FAERS Safety Report 16538154 (Version 1)
Quarter: 2019Q3

REPORT INFORMATION
  Report Type: Spontaneous
  Country: US (occurrence: US)
  Receive Date: 20190708
  Receipt Date: 20190708
  Transmission Date: 20191004
  Serious: Yes (Other)
  Sender: FDA-Public Use
  Company Number: US-SA-2017SA261343

PATIENT
  Age: 54 Year
  Sex: Female
  Weight: 62.59 kg

DRUGS (13)
  1. AMLODIPINE [Concomitant]
     Active Substance: AMLODIPINE BESYLATE
  2. TAXOL [Concomitant]
     Active Substance: PACLITAXEL
  3. LISINOPRIL. [Concomitant]
     Active Substance: LISINOPRIL
  4. INSULIN [Concomitant]
     Active Substance: INSULIN NOS
  5. SALBUTAMOL [Concomitant]
     Active Substance: ALBUTEROL
  6. CRESTOR [Concomitant]
     Active Substance: ROSUVASTATIN CALCIUM
  7. METOPROLOL. [Concomitant]
     Active Substance: METOPROLOL
  8. GABAPENTIN. [Concomitant]
     Active Substance: GABAPENTIN
  9. ASPIRIN [ACETYLSALICYLIC ACID] [Concomitant]
     Active Substance: ASPIRIN
     Dosage: UNK
  10. NAPROXEN. [Concomitant]
     Active Substance: NAPROXEN
  11. CYTOXAN [Concomitant]
     Active Substance: CYCLOPHOSPHAMIDE
  12. TAXOTERE [Suspect]
     Active Substance: DOCETAXEL
     Indication: BREAST CANCER FEMALE
     Dosage: UNK UNK,Q3W
     Route: 042
     Dates: start: 20060330, end: 20060330
  13. PACLITAXEL. [Concomitant]
     Active Substance: PACLITAXEL

REACTIONS (2)
  - Psychological trauma [Unknown]
  - Alopecia [Recovering/Resolving]

NARRATIVE: CASE EVENT DATE: 20060930
